FAERS Safety Report 20714320 (Version 1)
Quarter: 2022Q2

REPORT INFORMATION
  Report Type: Spontaneous
  Country: BE (occurrence: BE)
  Receive Date: 20220415
  Receipt Date: 20220415
  Transmission Date: 20220721
  Serious: Yes (Other)
  Sender: FDA-Public Use
  Company Number: BE-Fresenius Kabi-FK202204425

PATIENT
  Age: 44 Year

DRUGS (1)
  1. ACYCLOVIR SODIUM [Suspect]
     Active Substance: ACYCLOVIR SODIUM
     Indication: Viral infection
     Dosage: UNKNOWN
     Route: 042

REACTIONS (1)
  - Acute kidney injury [Recovered/Resolved]
